FAERS Safety Report 14758962 (Version 2)
Quarter: 2018Q2

REPORT INFORMATION
  Report Type: Spontaneous
  Country: US (occurrence: US)
  Receive Date: 20180413
  Receipt Date: 20180420
  Transmission Date: 20180711
  Serious: Yes (Other)
  Sender: FDA-Public Use
  Company Number: US-BAYER-2018-069134

PATIENT
  Age: 66 Year
  Sex: Male
  Weight: 68.03 kg

DRUGS (3)
  1. AFRIN ORIGINAL [Suspect]
     Active Substance: OXYMETAZOLINE HYDROCHLORIDE
     Indication: HYPERSENSITIVITY
     Dosage: UNK
     Route: 045
  2. AFRIN ORIGINAL [Suspect]
     Active Substance: OXYMETAZOLINE HYDROCHLORIDE
     Indication: NASOPHARYNGITIS
  3. LEVOTHYROXINE. [Concomitant]
     Active Substance: LEVOTHYROXINE

REACTIONS (8)
  - Nasal congestion [Recovered/Resolved]
  - Rebound nasal congestion [Unknown]
  - Deafness transitory [Recovered/Resolved]
  - Throat tightness [Unknown]
  - Device ineffective [Unknown]
  - Panic attack [Unknown]
  - Therapeutic response shortened [Unknown]
  - Dyspnoea [None]
